FAERS Safety Report 6946242-2 (Version None)
Quarter: 2010Q3

REPORT INFORMATION
  Report Type: 
  Country: None (occurrence: None)
  Receive Date: 20100827
  Receipt Date: 20100820
  Transmission Date: 20110219
  Serious: Yes (Hospitalization)
  Sender: FDA-Public Use
  Company Number: JP-ABBOTT-10P-087-0620411-00

PATIENT
  Sex: Female

DRUGS (15)
  1. HUMIRA [Suspect]
     Indication: RHEUMATOID ARTHRITIS
     Route: 058
     Dates: start: 20080620, end: 20080825
  2. HUMIRA [Suspect]
     Route: 058
     Dates: start: 20080908, end: 20091221
  3. PREDNISOLONE [Concomitant]
     Indication: RHEUMATOID ARTHRITIS
     Dosage: 8 MG DAILY
     Route: 048
     Dates: start: 20080813
  4. PREDNISOLONE [Concomitant]
     Dosage: 5 MG DAILY
     Route: 048
     Dates: start: 20050909, end: 20080812
  5. METHYLPREDNISOLONE ACETATE [Concomitant]
     Indication: RHEUMATOID ARTHRITIS
     Route: 014
     Dates: start: 20081220, end: 20081220
  6. METHYLPREDNISOLONE ACETATE [Concomitant]
     Route: 014
     Dates: start: 20091118, end: 20091118
  7. LOXOPROFEN SODIUM [Concomitant]
     Indication: RHEUMATOID ARTHRITIS
     Dosage: 180 MG DAILY
     Route: 048
     Dates: start: 20060704
  8. CIMETIDINE [Concomitant]
     Indication: GASTRITIS PROPHYLAXIS
     Dosage: 600 MG DAILY
     Route: 048
     Dates: start: 20070517
  9. ZOLPIDEM TARTRATE [Concomitant]
     Indication: INSOMNIA
     Dosage: 5 MG DAILY
     Route: 048
     Dates: start: 20060106
  10. CLOSTRIDIUM BUTYRICUM [Concomitant]
     Indication: PROPHYLAXIS
     Dosage: 6 TABLETS DAILY
     Dates: start: 20080218
  11. CLOSTRIDIUM BUTYRICUM [Concomitant]
     Indication: GASTROENTERITIS
  12. DICLOFENAC SODIUM [Concomitant]
     Indication: RHEUMATOID ARTHRITIS
     Dosage: 50/W
     Route: 061
     Dates: start: 20080521
  13. TERBINAFINE HYDROCHLORIDE [Concomitant]
     Indication: TINEA PEDIS
     Dosage: 10 GRAM DAILY
     Route: 061
     Dates: start: 20080913
  14. LOXOPROFEN SODIUM [Concomitant]
     Dosage: 200 MG DAILY TAPE
     Route: 061
     Dates: start: 20081006
  15. FERRIC OXIDE SACCHARATED [Concomitant]
     Indication: ANAEMIA
     Dosage: 80 MG/W
     Route: 042
     Dates: start: 20061226

REACTIONS (2)
  - ORGANISING PNEUMONIA [None]
  - SPONDYLOLISTHESIS [None]
